FAERS Safety Report 13849145 (Version 2)
Quarter: 2017Q3

REPORT INFORMATION
  Report Type: Spontaneous
  Country: US (occurrence: US)
  Receive Date: 20170809
  Receipt Date: 20170820
  Transmission Date: 20171127
  Serious: No
  Sender: FDA-Public Use
  Company Number: US-TEVA-796384ACC

PATIENT
  Age: 23 Year
  Sex: Female
  Weight: 59.02 kg

DRUGS (1)
  1. PLAN B ONE-STEP [Suspect]
     Active Substance: LEVONORGESTREL
     Indication: POST COITAL CONTRACEPTION
     Dates: start: 20170731, end: 20170731

REACTIONS (4)
  - Vaginal discharge [Unknown]
  - Muscle spasms [Not Recovered/Not Resolved]
  - Dysmenorrhoea [Recovered/Resolved]
  - Menstruation delayed [Unknown]

NARRATIVE: CASE EVENT DATE: 20170801
